FAERS Safety Report 17196845 (Version 1)
Quarter: 2019Q4

REPORT INFORMATION
  Report Type: Spontaneous
  Country: FR (occurrence: FR)
  Receive Date: 20191224
  Receipt Date: 20191224
  Transmission Date: 20200122
  Serious: Yes (Hospitalization)
  Sender: FDA-Public Use
  Company Number: FR-CELGENEUS-FRA-20191208123

PATIENT
  Age: 46 Year
  Sex: Male

DRUGS (2)
  1. FT-2102 [Concomitant]
     Active Substance: OLUTASIDENIB
     Indication: ACUTE MYELOID LEUKAEMIA
     Dosage: 300 MILLIGRAM
     Route: 048
     Dates: start: 20191105
  2. AZACITIDINE. [Suspect]
     Active Substance: AZACITIDINE
     Indication: ACUTE MYELOID LEUKAEMIA
     Dosage: 75 MILLIGRAM/SQ. METER
     Route: 058
     Dates: start: 20191105

REACTIONS (1)
  - Anal abscess [Not Recovered/Not Resolved]

NARRATIVE: CASE EVENT DATE: 20191216
